FAERS Safety Report 15987300 (Version 1)
Quarter: 2019Q1

REPORT INFORMATION
  Report Type: Spontaneous
  Country: US (occurrence: US)
  Receive Date: 20190220
  Receipt Date: 20190220
  Transmission Date: 20190418
  Serious: Yes (Other)
  Sender: FDA-Public Use
  Company Number: US-PFIZER INC-2019075472

PATIENT

DRUGS (2)
  1. PRILOSEC [Suspect]
     Active Substance: OMEPRAZOLE MAGNESIUM
  2. PROTONIX [Suspect]
     Active Substance: PANTOPRAZOLE SODIUM

REACTIONS (1)
  - Acute kidney injury [Unknown]
